FAERS Safety Report 12376428 (Version 2)
Quarter: 2016Q3

REPORT INFORMATION
  Report Type: Spontaneous
  Country: US (occurrence: US)
  Receive Date: 20160517
  Receipt Date: 20160901
  Transmission Date: 20161109
  Serious: No
  Sender: FDA-Public Use
  Company Number: US-RELYPSA-RLY2016000120

PATIENT
  Sex: Female

DRUGS (10)
  1. CALCITRIOL. [Concomitant]
     Active Substance: CALCITRIOL
     Dosage: 0.25 MCG, QD
  2. CENTRUM SILVER                     /02363801/ [Concomitant]
     Active Substance: MINERALS\VITAMINS
     Dosage: UNK, QD
  3. IRON (SUPPLEMENT) [Concomitant]
     Dosage: 325 MG, QD WITH FOOD
  4. VITAMIN C [Concomitant]
     Active Substance: ASCORBIC ACID
     Dosage: 500 MG, QD
  5. NOVOLIN N [Concomitant]
     Active Substance: INSULIN HUMAN
     Dosage: USE AS DIRECTED
  6. FUROSEMIDE. [Concomitant]
     Active Substance: FUROSEMIDE
  7. METOPROLOL                         /00376902/ [Concomitant]
     Active Substance: METOPROLOL
     Dosage: 25 MG TABLET(HALF TABLET BID)
  8. VELTASSA [Suspect]
     Active Substance: PATIROMER
     Dosage: 8.4 G, QD
  9. LOPID [Concomitant]
     Active Substance: GEMFIBROZIL
     Dosage: 600 MG, BID
  10. AMLODIPINE [Concomitant]
     Active Substance: AMLODIPINE BESYLATE
     Dosage: 5 MG, BID

REACTIONS (3)
  - Vomiting [Not Recovered/Not Resolved]
  - Abdominal discomfort [Not Recovered/Not Resolved]
  - Wheezing [Not Recovered/Not Resolved]

NARRATIVE: CASE EVENT DATE: 2016
